FAERS Safety Report 11320592 (Version 1)
Quarter: 2015Q3

REPORT INFORMATION
  Report Type: Spontaneous
  Country: US (occurrence: None)
  Receive Date: 20150728
  Receipt Date: 20150728
  Transmission Date: 20151125
  Serious: Yes (Hospitalization)
  Sender: FDA-Public Use
  Company Number: None

PATIENT
  Age: 40 Year
  Sex: Male
  Weight: 106.8 kg

DRUGS (1)
  1. IBUPROFEN. [Suspect]
     Active Substance: IBUPROFEN
     Indication: CRANIOCEREBRAL INJURY
     Route: 048
     Dates: start: 20140903, end: 20141205

REACTIONS (7)
  - Blood pressure decreased [None]
  - Dizziness [None]
  - Nausea [None]
  - Hypopnoea [None]
  - Heart rate increased [None]
  - Presyncope [None]
  - Gastric haemorrhage [None]

NARRATIVE: CASE EVENT DATE: 20141205
